FAERS Safety Report 5962495-1 (Version None)
Quarter: 2008Q4

REPORT INFORMATION
  Report Type: 
  Country: None (occurrence: None)
  Receive Date: 20081121
  Receipt Date: 20081111
  Transmission Date: 20090506
  Serious: Yes (Hospitalization, Other)
  Sender: FDA-Public Use
  Company Number: IT-PFIZER INC-2008095656

PATIENT
  Age: 92 Year
  Sex: Female

DRUGS (1)
  1. PREGABALIN [Suspect]
     Indication: HERPES ZOSTER

REACTIONS (3)
  - ATRIAL FIBRILLATION [None]
  - CARDIAC FAILURE [None]
  - SINUS TACHYCARDIA [None]
